FAERS Safety Report 20195820 (Version 1)
Quarter: 2021Q4

REPORT INFORMATION
  Report Type: Spontaneous
  Country: US (occurrence: US)
  Receive Date: 20211216
  Receipt Date: 20211216
  Transmission Date: 20220303
  Serious: Yes (Other)
  Sender: FDA-Public Use
  Company Number: US-PFIZER INC-202101758484

PATIENT
  Age: 82 Year
  Sex: Male

DRUGS (1)
  1. VYNDAMAX [Suspect]
     Active Substance: TAFAMIDIS
     Dosage: 61 MG

REACTIONS (15)
  - Ischaemic cardiomyopathy [Unknown]
  - Chronic kidney disease [Unknown]
  - Cerebrovascular accident [Unknown]
  - Type 2 diabetes mellitus [Unknown]
  - Acute myocardial infarction [Unknown]
  - Depression [Unknown]
  - Hypertension [Unknown]
  - Coronary artery disease [Unknown]
  - Hyperlipidaemia [Unknown]
  - Pulmonary mass [Unknown]
  - Emphysema [Unknown]
  - Revascularisation procedure [Unknown]
  - Weight decreased [Unknown]
  - Decreased appetite [Unknown]
  - Early satiety [Unknown]

NARRATIVE: CASE EVENT DATE: 20210101
